FAERS Safety Report 12530500 (Version 2)
Quarter: 2016Q3

REPORT INFORMATION
  Report Type: Spontaneous
  Country: AR (occurrence: AR)
  Receive Date: 20160706
  Receipt Date: 20160715
  Transmission Date: 20161109
  Serious: Yes (Other)
  Sender: FDA-Public Use
  Company Number: AR-GLAXOSMITHKLINE-AR2016GSK094545

PATIENT
  Sex: Female
  Weight: 9.35 kg

DRUGS (5)
  1. NEUMOCORT [Concomitant]
     Indication: PRODUCT USED FOR UNKNOWN INDICATION
     Dosage: UNK
  2. MONTELUKAST [Concomitant]
     Active Substance: MONTELUKAST SODIUM
     Indication: PRODUCT USED FOR UNKNOWN INDICATION
     Dosage: UNK
  3. VENTOLIN [Suspect]
     Active Substance: ALBUTEROL SULFATE
     Indication: ASTHMA
     Dosage: 2 PUFF(S), UNK
  4. VENTOLIN [Suspect]
     Active Substance: ALBUTEROL SULFATE
     Dosage: 3 PUFF(S), 6D
  5. VENTOLIN [Suspect]
     Active Substance: ALBUTEROL SULFATE
     Dosage: UNK

REACTIONS (11)
  - Bronchospasm [Unknown]
  - Agitation [Unknown]
  - Oxygen saturation decreased [Unknown]
  - Syncope [Unknown]
  - Pneumonitis [Unknown]
  - Product use issue [Unknown]
  - Product quality issue [Unknown]
  - Asphyxia [Unknown]
  - Bronchiolitis [Unknown]
  - Secretion discharge [Unknown]
  - Drug ineffective [Unknown]
